FAERS Safety Report 5123023-6 (Version None)
Quarter: 2006Q4

REPORT INFORMATION
  Report Type: 
  Country: None (occurrence: None)
  Receive Date: 20061005
  Receipt Date: 20060921
  Transmission Date: 20070319
  Serious: Yes (Other)
  Sender: FDA-Public Use
  Company Number: US200609006458

PATIENT
  Age: 17 Year
  Sex: Male
  Weight: 68 kg

DRUGS (2)
  1. ZYPREXA [Suspect]
     Dosage: 40 MG
     Dates: start: 20060101
  2. ARIPIPRAZOLE (ARIPIPRAZOLE) [Concomitant]

REACTIONS (4)
  - DIABETES MELLITUS [None]
  - HEPATITIS VIRAL [None]
  - OBESITY [None]
  - PRESCRIBED OVERDOSE [None]
